FAERS Safety Report 10876952 (Version 1)
Quarter: 2015Q1

REPORT INFORMATION
  Report Type: Other
  Country: DE (occurrence: DE)
  Receive Date: 20150302
  Receipt Date: 20150302
  Transmission Date: 20150721
  Serious: Yes (Other)
  Sender: FDA-Public Use
  Company Number: DE-LUPIN PHARMACEUTICALS INC.-E2B_00003198

PATIENT
  Age: 1 Day
  Sex: Male
  Weight: 3.49 kg

DRUGS (2)
  1. QUETIAPINE [Suspect]
     Active Substance: QUETIAPINE
     Indication: ANXIETY DISORDER
     Dosage: 50MG
     Route: 064
     Dates: start: 20140120, end: 20140926
  2. VENLAFAXINE [Suspect]
     Active Substance: VENLAFAXINE HYDROCHLORIDE
     Indication: ANXIETY DISORDER
     Dosage: 150MG
     Route: 064
     Dates: start: 20140120, end: 20140926

REACTIONS (4)
  - Respiratory disorder neonatal [Recovered/Resolved]
  - Premature separation of placenta [None]
  - Foetal exposure during pregnancy [Unknown]
  - Bradycardia neonatal [None]

NARRATIVE: CASE EVENT DATE: 20140120
